FAERS Safety Report 8072492-0 (Version None)
Quarter: 2011Q4

REPORT INFORMATION
  Report Type: 
  Country: None (occurrence: None)
  Receive Date: 20111222
  Receipt Date: 20111019
  Transmission Date: 20120403
  Serious: Yes (Hospitalization)
  Sender: FDA-Public Use
  Company Number: UTC-011469

PATIENT
  Age: 74 Year
  Sex: Female
  Weight: 102.3 kg

DRUGS (5)
  1. TRACLEER [Concomitant]
  2. TYVASO [Suspect]
     Indication: PULMONARY ARTERIAL HYPERTENSION
     Dosage: 48 MCG, 3-4 TIMES PER DAY, INHALATION
     Route: 055
     Dates: start: 20101218
  3. COUMADIN [Concomitant]
  4. DIURETICS (DIURETICS) [Concomitant]
  5. REVATIO [Concomitant]

REACTIONS (1)
  - FALL [None]
